FAERS Safety Report 5320696-X (Version None)
Quarter: 2007Q2

REPORT INFORMATION
  Report Type: 
  Country: None (occurrence: None)
  Receive Date: 20070509
  Receipt Date: 20070427
  Transmission Date: 20071010
  Serious: Yes (Other)
  Sender: FDA-Public Use
  Company Number: US-PFIZER INC-2007034647

PATIENT
  Sex: Male
  Weight: 113.63 kg

DRUGS (8)
  1. TIKOSYN [Suspect]
     Indication: ATRIAL FIBRILLATION
     Route: 048
  2. CARDIZEM [Concomitant]
  3. ANTICOAGULANTS [Concomitant]
  4. LISINOPRIL [Concomitant]
  5. GLIMEPIRIDE [Concomitant]
  6. PRILOSEC [Concomitant]
  7. ANTIBIOTICS [Concomitant]
  8. PROPAFENONE HCL [Concomitant]

REACTIONS (2)
  - BLOOD PRESSURE INADEQUATELY CONTROLLED [None]
  - TACHYCARDIA [None]
